FAERS Safety Report 19780246 (Version 2)
Quarter: 2021Q3

REPORT INFORMATION
  Report Type: Spontaneous
  Country: US (occurrence: US)
  Receive Date: 20210902
  Receipt Date: 20210916
  Transmission Date: 20211014
  Serious: Yes (Life-Threatening, Hospitalization, Other)
  Sender: FDA-Public Use
  Company Number: US-PFIZER INC-202101089666

PATIENT
  Sex: Female
  Weight: .13 kg

DRUGS (28)
  1. HEPARIN SODIUM. [Suspect]
     Active Substance: HEPARIN SODIUM
     Dosage: D8
  2. HEPARIN SODIUM. [Suspect]
     Active Substance: HEPARIN SODIUM
     Dosage: FREQ:1 MIN;DAY 1
  3. NITRIC OXIDE. [Concomitant]
     Active Substance: NITRIC OXIDE
     Indication: HYPOXIC-ISCHAEMIC ENCEPHALOPATHY
     Dosage: UNK
     Route: 055
  4. HEPARIN SODIUM. [Suspect]
     Active Substance: HEPARIN SODIUM
     Dosage: STANDARD LOADING DOSE OF 100 UNITS/ KG
  5. HEPARIN SODIUM. [Suspect]
     Active Substance: HEPARIN SODIUM
     Dosage: FREQ:1 MIN;D 2
  6. HEPARIN SODIUM. [Suspect]
     Active Substance: HEPARIN SODIUM
     Dosage: FREQ:1 MIN;D9
  7. HEPARIN SODIUM. [Suspect]
     Active Substance: HEPARIN SODIUM
     Dosage: FREQ:1 MIN;D2
  8. FRESH FROZEN PLASMA [Concomitant]
     Active Substance: HUMAN PLASMA
     Indication: COAGULOPATHY
     Dosage: 30 ML/ KG
  9. HEPARIN SODIUM. [Suspect]
     Active Substance: HEPARIN SODIUM
     Dosage: FREQ:1 MIN;D4
  10. HEPARIN SODIUM. [Suspect]
     Active Substance: HEPARIN SODIUM
     Dosage: FREQ:1 MIN;D6
  11. HEPARIN SODIUM. [Suspect]
     Active Substance: HEPARIN SODIUM
     Dosage: FREQ:1 MIN;D8
  12. HEPARIN SODIUM. [Suspect]
     Active Substance: HEPARIN SODIUM
     Dosage: FREQ:1 MIN;D7
  13. HEPARIN SODIUM. [Suspect]
     Active Substance: HEPARIN SODIUM
     Dosage: FREQ:1 MIN;D9
  14. HEPARIN SODIUM. [Suspect]
     Active Substance: HEPARIN SODIUM
     Dosage: FREQ:1 MIN;D3
  15. HYDROCORTISONE. [Concomitant]
     Active Substance: HYDROCORTISONE
     Indication: HYPOXIC-ISCHAEMIC ENCEPHALOPATHY
     Dosage: UNK
  16. GENTAMICIN. [Concomitant]
     Active Substance: GENTAMICIN
     Indication: SEPSIS
     Dosage: UNK
  17. HEPARIN SODIUM. [Suspect]
     Active Substance: HEPARIN SODIUM
     Dosage: FREQ:1 MIN;D7
  18. HEPARIN SODIUM. [Suspect]
     Active Substance: HEPARIN SODIUM
     Dosage: FREQ:1 MIN;D3
  19. HEPARIN SODIUM. [Suspect]
     Active Substance: HEPARIN SODIUM
     Dosage: FREQ:1 MIN;DAY 1
  20. CEFOTAXIME [Concomitant]
     Active Substance: CEFOTAXIME SODIUM
     Indication: SEPSIS
     Dosage: UNK
  21. HEPARIN SODIUM. [Suspect]
     Active Substance: HEPARIN SODIUM
     Dosage: FREQ:1 MIN;D5
  22. HEPARIN SODIUM. [Suspect]
     Active Substance: HEPARIN SODIUM
     Dosage: FREQ:1 MIN;D5
  23. DOPAMINE [Concomitant]
     Active Substance: DOPAMINE HYDROCHLORIDE
     Indication: HYPOXIC-ISCHAEMIC ENCEPHALOPATHY
     Dosage: 20 UG/KG/MIN
     Route: 042
  24. VASOPRESSIN. [Concomitant]
     Active Substance: VASOPRESSIN
     Indication: HYPOXIC-ISCHAEMIC ENCEPHALOPATHY
     Dosage: 80 MILLIUNITS/KG/HOUR
  25. HEPARIN SODIUM. [Suspect]
     Active Substance: HEPARIN SODIUM
     Dosage: FREQ:1 MIN;D4
  26. HEPARIN SODIUM. [Suspect]
     Active Substance: HEPARIN SODIUM
     Dosage: FREQ:1 MIN;D6
  27. DOBUTAMINE [Concomitant]
     Active Substance: DOBUTAMINE HYDROCHLORIDE
     Indication: HYPOXIC-ISCHAEMIC ENCEPHALOPATHY
     Dosage: 20 UG/KG/MIN
     Route: 042
  28. AMPICILLIN [Concomitant]
     Active Substance: AMPICILLIN
     Indication: SEPSIS
     Dosage: UNK

REACTIONS (10)
  - Pulmonary hypertension [Unknown]
  - Ventricular dysfunction [Unknown]
  - Bradycardia neonatal [Unknown]
  - Intraventricular haemorrhage neonatal [Unknown]
  - Pulmonary haemorrhage neonatal [Recovering/Resolving]
  - Atelectasis neonatal [Recovering/Resolving]
  - Fluid overload [Unknown]
  - Neonatal cardiac failure [Unknown]
  - Enterobacter pneumonia [Recovering/Resolving]
  - Newborn persistent pulmonary hypertension [Unknown]
